FAERS Safety Report 5138411-1 (Version None)
Quarter: 2006Q4

REPORT INFORMATION
  Report Type: 
  Country: None (occurrence: None)
  Receive Date: 20061030
  Receipt Date: 20060220
  Transmission Date: 20070319
  Serious: No
  Sender: FDA-Public Use
  Company Number: US-GLAXOSMITHKLINE-A0594408A

PATIENT
  Sex: Female

DRUGS (19)
  1. ADVAIR DISKUS 250/50 [Suspect]
     Indication: ASTHMA
     Dosage: 1PUFF TWICE PER DAY
     Route: 055
     Dates: start: 19990101
  2. ALBUTEROL [Concomitant]
  3. DETROL LA [Concomitant]
  4. AMITRIPTYLINE HCL [Concomitant]
  5. NIASPAN [Concomitant]
  6. ECONAZOLE NITRATE [Concomitant]
  7. HYDROXYCHLOROQUINE SULFATE [Concomitant]
  8. FOLIC ACID [Concomitant]
  9. RHINOCORT [Concomitant]
  10. FORTICAL [Concomitant]
  11. UNKNOWN MEDICATION [Concomitant]
  12. NEXIUM [Concomitant]
  13. PILOCARPINE HCL [Concomitant]
  14. FOSAMAX [Concomitant]
  15. MOBIC [Concomitant]
  16. LUNESTA [Concomitant]
  17. SKELAXIN [Concomitant]
  18. GABAPENTIN [Concomitant]
  19. DICYCLOMINE [Concomitant]

REACTIONS (2)
  - DRUG INEFFECTIVE [None]
  - ILL-DEFINED DISORDER [None]
